FAERS Safety Report 9991988 (Version 2)
Quarter: 2014Q1

REPORT INFORMATION
  Report Type: Spontaneous
  Country: US (occurrence: US)
  Receive Date: 20140310
  Receipt Date: 20140310
  Transmission Date: 20141002
  Serious: No
  Sender: FDA-Public Use
  Company Number: US-JNJFOC-20140206215

PATIENT
  Age: 32 Year
  Sex: Female
  Weight: 58.97 kg

DRUGS (4)
  1. INVEGA [Suspect]
     Indication: SCHIZOPHRENIA
     Route: 048
     Dates: start: 201312, end: 201401
  2. INVEGA [Suspect]
     Indication: SCHIZOPHRENIA
     Route: 048
     Dates: start: 201312, end: 201312
  3. FLUOXETINE [Concomitant]
     Indication: DEPRESSION
     Route: 048
  4. AMANTADINE [Concomitant]
     Indication: DEPRESSION
     Route: 048

REACTIONS (3)
  - Drug ineffective [Unknown]
  - Delusion [Unknown]
  - Treatment noncompliance [Unknown]
